FAERS Safety Report 17112243 (Version 1)
Quarter: 2019Q4

REPORT INFORMATION
  Report Type: Spontaneous
  Country: DE (occurrence: DE)
  Receive Date: 20191204
  Receipt Date: 20191204
  Transmission Date: 20200122
  Serious: Yes (Life-Threatening)
  Sender: FDA-Public Use
  Company Number: DE-ASTRAZENECA-2019SF71736

PATIENT
  Age: 32 Year
  Sex: Male

DRUGS (1)
  1. CORTIMENT [HYDROCORTISONE ACETATE] [Suspect]
     Active Substance: HYDROCORTISONE ACETATE
     Indication: INFLAMMATORY BOWEL DISEASE
     Dosage: 9.0MG UNKNOWN
     Route: 055
     Dates: start: 20190924

REACTIONS (1)
  - Portal vein thrombosis [Not Recovered/Not Resolved]

NARRATIVE: CASE EVENT DATE: 201909
